FAERS Safety Report 24164279 (Version 1)
Quarter: 2024Q3

REPORT INFORMATION
  Report Type: Spontaneous
  Country: CN (occurrence: CN)
  Receive Date: 20240801
  Receipt Date: 20240801
  Transmission Date: 20241017
  Serious: Yes (Other)
  Sender: NOVARTIS
  Company Number: CN-002147023-NVSC2024CN157075

PATIENT
  Age: 3 Month
  Sex: Male
  Weight: 5.9 kg

DRUGS (1)
  1. OXCARBAZEPINE [Suspect]
     Active Substance: OXCARBAZEPINE
     Indication: Seizure
     Dosage: 0.4 ML, BID
     Route: 048
     Dates: start: 20240708, end: 20240714

REACTIONS (4)
  - Drug eruption [Unknown]
  - Rash [Recovering/Resolving]
  - Rash maculo-papular [Unknown]
  - Pruritus [Unknown]

NARRATIVE: CASE EVENT DATE: 20240714
